FAERS Safety Report 5856505-X (Version None)
Quarter: 2008Q3

REPORT INFORMATION
  Report Type: 
  Country: None (occurrence: None)
  Receive Date: 20080825
  Receipt Date: 20080707
  Transmission Date: 20090109
  Serious: No
  Sender: FDA-Public Use
  Company Number: A0736243A

PATIENT
  Age: 43 Year
  Sex: Female

DRUGS (5)
  1. VERAMYST [Suspect]
     Indication: SINUSITIS
     Dosage: 2SPR TWICE PER DAY
     Route: 045
     Dates: start: 20080605
  2. MULTI-VITAMINS [Concomitant]
  3. ACIPHEX [Concomitant]
  4. ACYCLOVIR [Concomitant]
  5. CALCIUM [Concomitant]

REACTIONS (5)
  - BREAST TENDERNESS [None]
  - CHEST PAIN [None]
  - ERYTHEMA [None]
  - HYPOAESTHESIA [None]
  - PARAESTHESIA [None]
